FAERS Safety Report 9324236 (Version 1)
Quarter: 2013Q2

REPORT INFORMATION
  Report Type: Spontaneous
  Country: US (occurrence: US)
  Receive Date: 20130603
  Receipt Date: 20130603
  Transmission Date: 20140414
  Serious: Yes (Other)
  Sender: FDA-Public Use
  Company Number: US-JNJFOC-20101201163

PATIENT
  Sex: Male

DRUGS (5)
  1. LEVAQUIN [Suspect]
     Indication: CELLULITIS
     Route: 048
     Dates: start: 2010
  2. LEVAQUIN [Suspect]
     Indication: CELLULITIS
     Route: 048
     Dates: start: 2006
  3. LEVAQUIN [Suspect]
     Indication: URINARY TRACT INFECTION
     Route: 048
     Dates: start: 2010
  4. LEVAQUIN [Suspect]
     Indication: URINARY TRACT INFECTION
     Route: 048
     Dates: start: 2006
  5. LEVAQUIN [Suspect]
     Indication: PRODUCT USED FOR UNKNOWN INDICATION
     Route: 048

REACTIONS (8)
  - Muscle rupture [Unknown]
  - Tendon rupture [Unknown]
  - Tendon rupture [Unknown]
  - Rotator cuff syndrome [Unknown]
  - Tenosynovitis [Unknown]
  - Rotator cuff syndrome [Unknown]
  - Foot deformity [Unknown]
  - Tendonitis [Unknown]
